FAERS Safety Report 5321934-X (Version None)
Quarter: 2007Q2

REPORT INFORMATION
  Report Type: 
  Country: None (occurrence: None)
  Receive Date: 20070511
  Receipt Date: 20070504
  Transmission Date: 20071010
  Serious: Yes (Other)
  Sender: FDA-Public Use
  Company Number: PHBS2007BR03892

PATIENT
  Age: 60 Year
  Sex: Female
  Weight: 52 kg

DRUGS (2)
  1. MERIGEST [Suspect]
     Indication: HORMONE REPLACEMENT THERAPY
     Route: 065
  2. ESTRAGEST [Concomitant]
     Dosage: 125/25 UG
     Route: 062

REACTIONS (2)
  - BLOOD PRESSURE INCREASED [None]
  - BREAST MASS [None]
